FAERS Safety Report 21054607 (Version 2)
Quarter: 2022Q3

REPORT INFORMATION
  Report Type: Spontaneous
  Country: GB (occurrence: GB)
  Receive Date: 20220707
  Receipt Date: 20220805
  Transmission Date: 20221026
  Serious: Yes (Life-Threatening, Hospitalization, Other)
  Sender: FDA-Public Use
  Company Number: GB-VERTEX PHARMACEUTICALS-2021-000961

PATIENT
  Sex: Female

DRUGS (11)
  1. IVACAFTOR\TEZACAFTOR [Suspect]
     Active Substance: IVACAFTOR\TEZACAFTOR
     Indication: Cystic fibrosis
     Dosage: 50MG/75MG, QD
     Route: 048
     Dates: start: 20210115, end: 20210115
  2. KALYDECO [Suspect]
     Active Substance: IVACAFTOR
     Indication: Cystic fibrosis
     Route: 048
  3. VITAMIN D [Concomitant]
     Active Substance: VITAMIN D NOS
     Dosage: PROD3 800UNIT CAPSULES ONE DAILY
     Route: 048
  4. COLISTIN [Concomitant]
     Active Substance: COLISTIN
     Dosage: (PROMIXIN) NEBULIZED 1MU TWICE DAILY
  5. DORNASE ALFA [Concomitant]
     Active Substance: DORNASE ALFA
     Dosage: 2.5 MG NEBULIZED, BID
  6. FLUCLOXACILLIN [Concomitant]
     Active Substance: FLUCLOXACILLIN
     Dosage: 500 MG CAPSULES, BID
     Route: 048
  7. PARAVIT CF [Concomitant]
     Dosage: CAPSULE 1 DAILY
     Route: 048
  8. VITAMIN K [Concomitant]
     Active Substance: PHYTONADIONE
     Dosage: 5 MG, QD
     Route: 048
  9. SERETIDE [Concomitant]
     Active Substance: FLUTICASONE PROPIONATE\SALMETEROL XINAFOATE
     Dosage: 125MCH PMDI 2 PUFFS INHALED TWICE DAILY
  10. ERGOCALCIFEROL\RETINOL [Concomitant]
     Active Substance: ERGOCALCIFEROL\RETINOL
     Dosage: CAPSULES BPC 1973 ONE CAPSULE DAILY ORAL
  11. CREON [Concomitant]
     Active Substance: PANCRELIPASE AMYLASE\PANCRELIPASE LIPASE\PANCRELIPASE PROTEASE
     Dosage: 10,000 CAPSULES PANCREATIC ENZYMES WITH MEALS/SNACKS
     Route: 048

REACTIONS (1)
  - Hypersensitivity [Recovered/Resolved]

NARRATIVE: CASE EVENT DATE: 20210115
